FAERS Safety Report 16630534 (Version 1)
Quarter: 2019Q3

REPORT INFORMATION
  Report Type: Report from Study
  Country: KR (occurrence: KR)
  Receive Date: 20190725
  Receipt Date: 20190725
  Transmission Date: 20191004
  Serious: Yes (Other)
  Sender: FDA-Public Use
  Company Number: KR-ASTRAZENECA-2019SF03569

PATIENT

DRUGS (1)
  1. OSIMERTINIB MESILATE [Suspect]
     Active Substance: OSIMERTINIB
     Route: 048

REACTIONS (2)
  - Cornea verticillata [Unknown]
  - Visual acuity reduced [Unknown]
